FAERS Safety Report 9105470 (Version 2)
Quarter: 2013Q1

REPORT INFORMATION
  Report Type: Spontaneous
  Country: JP (occurrence: JP)
  Receive Date: 20130220
  Receipt Date: 20130227
  Transmission Date: 20140127
  Serious: Yes (Hospitalization)
  Sender: FDA-Public Use
  Company Number: JP-VERTEX PHARMACEUTICALS INC.-2013-002291

PATIENT
  Age: 56 Year
  Sex: Male

DRUGS (12)
  1. TELAVIC [Suspect]
     Indication: CHRONIC HEPATITIS C
     Dosage: 2250 MG, QD
     Route: 048
     Dates: start: 20121024, end: 20121101
  2. TELAVIC [Suspect]
     Dosage: 1500 MG, QD
     Route: 048
     Dates: start: 20121102, end: 20130115
  3. PEGINTERFERON ALFA-2B [Concomitant]
     Dosage: 1.5 ?G/KG, QW
     Route: 058
     Dates: start: 20121024, end: 20130116
  4. RIBAVIRIN [Concomitant]
     Dosage: 800 MG, QD
     Route: 048
     Dates: start: 20121024, end: 20130129
  5. CLARITIN [Concomitant]
     Dosage: 10 MG, QD
     Route: 048
     Dates: start: 20121024, end: 20130129
  6. LOBU [Concomitant]
     Dosage: UNK, PRN
     Route: 048
     Dates: start: 20121024
  7. ZYLORIC [Concomitant]
     Dosage: 2 DF, QD
     Route: 048
     Dates: start: 20121026
  8. POSTERISAN [Concomitant]
     Dosage: UNK, QD
     Route: 061
     Dates: start: 20121027
  9. PRIMPERAN [Concomitant]
     Dosage: UNK, QD/PRN
     Route: 048
     Dates: start: 20121031, end: 20121103
  10. BEZATOL SR [Concomitant]
     Dosage: 2 DF, QD
     Route: 048
     Dates: start: 20121105, end: 20121107
  11. HYALEIN [Concomitant]
     Dosage: UNK, QD
     Route: 047
     Dates: start: 20130104
  12. CALONAL [Concomitant]
     Dosage: UNK, QD/PRN
     Route: 048
     Dates: start: 20130125

REACTIONS (2)
  - Interstitial lung disease [Recovered/Resolved]
  - Rash [Recovered/Resolved]
